FAERS Safety Report 14700517 (Version 3)
Quarter: 2025Q4

REPORT INFORMATION
  Report Type: Spontaneous
  Country: TW (occurrence: TW)
  Receive Date: 20180330
  Receipt Date: 20251218
  Transmission Date: 20260117
  Serious: Yes (Hospitalization, Other)
  Sender: BAUSCH AND LOMB
  Company Number: TW-MLMSERVICE-20180312-1104951-1

PATIENT
  Age: 2 Year
  Sex: Male

DRUGS (6)
  1. DICLOFENAC SODIUM [Interacting]
     Active Substance: DICLOFENAC SODIUM
     Indication: Pyrexia
     Dosage: 1.6 MG KGE-1 DAYE-1, DAILY FOR 3 WEEKS
     Route: 065
  2. CEFTRIAXONE [Interacting]
     Active Substance: CEFTRIAXONE
     Indication: Product used for unknown indication
     Route: 042
  3. ACETAMINOPHEN [Interacting]
     Active Substance: ACETAMINOPHEN
     Indication: Pyrexia
     Route: 065
  4. ACETAMINOPHEN [Interacting]
     Active Substance: ACETAMINOPHEN
     Indication: Oropharyngeal pain
  5. CEPHALEXIN [Interacting]
     Active Substance: CEPHALEXIN
     Indication: Oropharyngeal pain
     Route: 065
  6. CEPHALEXIN [Interacting]
     Active Substance: CEPHALEXIN
     Indication: Pyrexia

REACTIONS (10)
  - Large intestine perforation [Recovering/Resolving]
  - Abdominal abscess [Recovering/Resolving]
  - Abdominal adhesions [Unknown]
  - Peritonitis [Recovering/Resolving]
  - Escherichia infection [Unknown]
  - Klebsiella infection [Unknown]
  - Beta haemolytic streptococcal infection [Unknown]
  - Enterococcal infection [Unknown]
  - Drug interaction [Unknown]
  - Off label use [Unknown]
